FAERS Safety Report 7865184-1 (Version None)
Quarter: 2011Q4

REPORT INFORMATION
  Report Type: 
  Country: None (occurrence: None)
  Receive Date: 20111028
  Receipt Date: 20101027
  Transmission Date: 20120403
  Serious: No
  Sender: FDA-Public Use
  Company Number: US-GLAXOSMITHKLINE-A0889128A

PATIENT
  Age: 77 Year
  Sex: Female

DRUGS (2)
  1. COMBIVENT [Concomitant]
  2. ADVAIR DISKUS 100/50 [Suspect]
     Indication: BRONCHIECTASIS
     Dosage: 1PUFF TWICE PER DAY
     Route: 055

REACTIONS (4)
  - ANXIETY [None]
  - PAIN [None]
  - CONFUSIONAL STATE [None]
  - THYROID CYST [None]
